FAERS Safety Report 6715227-3 (Version None)
Quarter: 2010Q2

REPORT INFORMATION
  Report Type: 
  Country: None (occurrence: None)
  Receive Date: 20100507
  Receipt Date: 20100426
  Transmission Date: 20101027
  Serious: Yes (Other)
  Sender: FDA-Public Use
  Company Number: US-PFIZER INC-2010031880

PATIENT
  Sex: Female
  Weight: 53.5 kg

DRUGS (3)
  1. AROMASIN [Suspect]
     Indication: BREAST CANCER
     Dosage: 25 MG, 1X/DAY
     Route: 048
     Dates: start: 20091124, end: 20100305
  2. AROMASIN [Suspect]
     Dosage: 25 MG, 1X/DAY
     Route: 048
     Dates: start: 20100309, end: 20100310
  3. FEMARA [Suspect]
     Indication: BREAST CANCER STAGE IV
     Dosage: 2.5 MG, 1X/DAY
     Dates: start: 20080916, end: 20091101

REACTIONS (8)
  - CHEST PAIN [None]
  - DECREASED APPETITE [None]
  - HYPERSENSITIVITY [None]
  - INSOMNIA [None]
  - MUSCULOSKELETAL CHEST PAIN [None]
  - PRURITUS GENERALISED [None]
  - TUMOUR PAIN [None]
  - WEIGHT DECREASED [None]
